FAERS Safety Report 12670493 (Version 1)
Quarter: 2016Q3

REPORT INFORMATION
  Report Type: Report from Study
  Country: GR (occurrence: GR)
  Receive Date: 20160822
  Receipt Date: 20160822
  Transmission Date: 20161109
  Serious: Yes (Other)
  Sender: FDA-Public Use
  Company Number: GR-CIPLA LTD.-2016GR17370

PATIENT

DRUGS (7)
  1. PRAVASTATIN. [Suspect]
     Active Substance: PRAVASTATIN
     Indication: ANTIPHOSPHOLIPID SYNDROME
     Dosage: 20 MG, QD
     Route: 065
  2. ASPIRIN. [Suspect]
     Active Substance: ASPIRIN
     Indication: ANTIPHOSPHOLIPID SYNDROME
     Dosage: 80 MG, QD, LOW DOSE
     Route: 048
  3. ASPIRIN. [Suspect]
     Active Substance: ASPIRIN
     Indication: PRE-ECLAMPSIA
  4. PRAVASTATIN. [Suspect]
     Active Substance: PRAVASTATIN
     Indication: PRE-ECLAMPSIA
  5. PRAVASTATIN. [Suspect]
     Active Substance: PRAVASTATIN
     Indication: FOETAL GROWTH RESTRICTION
  6. ASPIRIN. [Suspect]
     Active Substance: ASPIRIN
     Indication: FOETAL GROWTH RESTRICTION
  7. METHYLDOPA. [Suspect]
     Active Substance: METHYLDOPA
     Indication: HYPERTENSION
     Dosage: UNK
     Route: 065

REACTIONS (2)
  - Premature delivery [Unknown]
  - Exposure during pregnancy [Unknown]
